FAERS Safety Report 21916713 (Version 3)
Quarter: 2023Q1

REPORT INFORMATION
  Report Type: Spontaneous
  Country: DE (occurrence: DE)
  Receive Date: 20230126
  Receipt Date: 20230221
  Transmission Date: 20230418
  Serious: Yes (Other)
  Sender: FDA-Public Use
  Company Number: DE-BIOVITRUM-2023DE01373

PATIENT
  Age: 33 Year
  Sex: Male

DRUGS (2)
  1. DOPTELET [Suspect]
     Active Substance: AVATROMBOPAG MALEATE
     Indication: Immune thrombocytopenia
     Dates: start: 202202
  2. DOPTELET [Suspect]
     Active Substance: AVATROMBOPAG MALEATE
     Dates: start: 202209

REACTIONS (5)
  - Gastrointestinal haemorrhage [Recovered/Resolved]
  - Mouth haemorrhage [Recovered/Resolved]
  - COVID-19 [Recovered/Resolved]
  - Gastroenteritis [Recovered/Resolved]
  - Hepatic steatosis [Recovered/Resolved]

NARRATIVE: CASE EVENT DATE: 20220301
